FAERS Safety Report 12294840 (Version 1)
Quarter: 2016Q2

REPORT INFORMATION
  Report Type: Spontaneous
  Country: IL (occurrence: IL)
  Receive Date: 20160422
  Receipt Date: 20160422
  Transmission Date: 20160815
  Serious: Yes (Other)
  Sender: FDA-Public Use
  Company Number: IL-ROCHE-1746120

PATIENT
  Age: 8 Year
  Sex: Female

DRUGS (2)
  1. TRAMETINIB [Suspect]
     Active Substance: TRAMETINIB
     Indication: GLIOMA
     Route: 065
  2. AVASTIN [Suspect]
     Active Substance: BEVACIZUMAB
     Indication: GLIOMA
     Route: 065

REACTIONS (5)
  - Blood creatine phosphokinase increased [Unknown]
  - Proteinuria [Unknown]
  - Off label use [Unknown]
  - Hypertension [Unknown]
  - Headache [Unknown]
